FAERS Safety Report 9104087 (Version 1)
Quarter: 2013Q1

REPORT INFORMATION
  Report Type: Spontaneous
  Country: US (occurrence: US)
  Receive Date: 20130219
  Receipt Date: 20130219
  Transmission Date: 20140127
  Serious: Yes (Hospitalization)
  Sender: FDA-Public Use
  Company Number: US-SANOFI-AVENTIS-2012SA032323

PATIENT
  Age: 63 Year
  Sex: Male
  Weight: 87.1 kg

DRUGS (18)
  1. DIABETA [Suspect]
     Indication: TYPE 2 DIABETES MELLITUS
     Route: 048
     Dates: start: 2007, end: 201105
  2. DIABETA [Suspect]
     Indication: TYPE 2 DIABETES MELLITUS
     Route: 048
     Dates: start: 20110615, end: 20110819
  3. BLINDED THERAPY [Suspect]
     Indication: OSTEOARTHRITIS
     Route: 048
     Dates: start: 20101221, end: 20110428
  4. BLINDED THERAPY [Suspect]
     Indication: RHEUMATOID ARTHRITIS
     Route: 048
     Dates: start: 20101221, end: 20110428
  5. NEXIUM /UNK/ [Concomitant]
     Indication: PROPHYLAXIS
     Dates: start: 20101221, end: 20110428
  6. NORVASC /DEN/ [Concomitant]
     Indication: HYPERTENSION
     Dates: start: 2000
  7. DOXEPIN [Concomitant]
     Indication: BIPOLAR DISORDER
     Dates: start: 2006
  8. NITROSTAT [Concomitant]
     Indication: ANGINA PECTORIS
     Dates: start: 2006
  9. LASIX [Concomitant]
     Indication: HYPERTENSION
     Dates: start: 2006
  10. ZOCOR [Concomitant]
     Indication: HYPERLIPIDAEMIA
     Dates: start: 2006
  11. ZESTRIL [Concomitant]
     Indication: HYPERTENSION
     Dates: start: 2006
  12. LAMOTRIGINE [Concomitant]
     Indication: BIPOLAR DISORDER
     Dates: start: 2006
  13. AMBIEN [Concomitant]
     Indication: INSOMNIA
     Dates: start: 2008
  14. METOPROLOL TARTRATE [Concomitant]
     Indication: HYPERTENSION
     Dates: start: 2005
  15. GLUCOPHAGE [Concomitant]
     Indication: DIABETES MELLITUS
     Dates: start: 2005
  16. ASPIRIN [Concomitant]
     Indication: CARDIOVASCULAR EVENT PROPHYLAXIS
     Dates: start: 2006
  17. HYDRODIURIL [Concomitant]
     Indication: HYPERTENSION
     Dates: start: 20110114
  18. TRICOR [Concomitant]
     Indication: HYPERLIPIDAEMIA
     Dates: start: 20110114

REACTIONS (1)
  - Hypoglycaemia [Recovered/Resolved]
